FAERS Safety Report 8075287-7 (Version None)
Quarter: 2012Q1

REPORT INFORMATION
  Report Type: 
  Country: None (occurrence: None)
  Receive Date: 20120127
  Receipt Date: 20120120
  Transmission Date: 20120608
  Serious: Yes (Other)
  Sender: FDA-Public Use
  Company Number: US-JNJFOC-20120110485

PATIENT
  Age: 37 Year
  Sex: Male

DRUGS (1)
  1. LISTERINE ORIGINAL [Suspect]
     Indication: INTENTIONAL DRUG MISUSE
     Route: 048

REACTIONS (6)
  - ALCOHOL POISONING [None]
  - INCORRECT ROUTE OF DRUG ADMINISTRATION [None]
  - INTENTIONAL DRUG MISUSE [None]
  - RASH [None]
  - LIVER DISORDER [None]
  - RENAL DISORDER [None]
